FAERS Safety Report 8838771 (Version 1)
Quarter: 2012Q4

REPORT INFORMATION
  Report Type: 
  Country: GB (occurrence: GB)
  Receive Date: 20121013
  Receipt Date: 20121013
  Transmission Date: 20130627
  Serious: Yes (Hospitalization)
  Sender: FDA-Public Use
  Company Number: GB-ACCORD-014872

PATIENT
  Age: 56 Year
  Sex: Female
  Weight: 101 kg

DRUGS (4)
  1. DOCETAXEL [Suspect]
     Indication: MALIGNANT BREAST NEOPLASM
     Route: 042
     Dates: start: 20120816, end: 20120906
  2. FILGRASTIM [Suspect]
     Indication: DRUG USE FOR UNKNOWN INDICATION
     Dates: start: 20120907, end: 20120913
  3. TRASTUZUMAB [Suspect]
     Indication: MALIGNANT BREAST NEOPLASM
     Route: 042
     Dates: start: 20120816, end: 20120906
  4. PERTUZUMAB [Suspect]
     Indication: MALIGNANT BREAST NEOPLASM
     Dosage: Unk, 3 times/week
     Route: 042
     Dates: start: 20120816, end: 20120906

REACTIONS (6)
  - Suspected neutropenic sepsis [Unknown]
  - Pyrexial [Recovering/Resolving]
  - Shivers [Unknown]
  - Nausea [Unknown]
  - Cold and clammy [Unknown]
  - Coughing green sputum [Unknown]
